FAERS Safety Report 16668273 (Version 1)
Quarter: 2019Q3

REPORT INFORMATION
  Report Type: Spontaneous
  Country: US (occurrence: US)
  Receive Date: 20190803
  Receipt Date: 20190803
  Transmission Date: 20191004
  Serious: No
  Sender: FDA-Public Use
  Company Number: None

PATIENT
  Age: 74 Year
  Sex: Male
  Weight: 85.95 kg

DRUGS (1)
  1. LISTERINE ULTRACLEAN ANTISEPTIC COOL MINT [Suspect]
     Active Substance: EUCALYPTOL\MENTHOL\METHYL SALICYLATE\THYMOL
     Indication: DENTAL DISORDER PROPHYLAXIS
     Dosage: ?          OTHER ROUTE:MOUTH RINSE AT NIGHT?
     Dates: start: 20190716, end: 20190801

REACTIONS (1)
  - Oral mucosal exfoliation [None]

NARRATIVE: CASE EVENT DATE: 20190716
